FAERS Safety Report 5663735-9 (Version None)
Quarter: 2008Q1

REPORT INFORMATION
  Report Type: 
  Country: None (occurrence: None)
  Receive Date: 20080307
  Receipt Date: 20080214
  Transmission Date: 20080703
  Serious: Yes (Hospitalization)
  Sender: FDA-Public Use
  Company Number: 547695

PATIENT
  Age: 45 Year
  Sex: Male

DRUGS (4)
  1. SORIATANE [Suspect]
     Indication: DRUG USE FOR UNKNOWN INDICATION
     Dosage: ORAL
     Route: 048
     Dates: start: 20070915, end: 20071028
  2. RHINUREFLEX (IBUPROFEN/PSEUDOEPHEDRINE HYDROCHLORIDE) [Concomitant]
  3. MUCICLAR (*AMBROXOL/*CARBOCYSTEINE) [Concomitant]
  4. BRONCHODUAL (FENOTEROL/IPRATROPIUM BROMIDE) [Concomitant]

REACTIONS (9)
  - BLOOD LACTATE DEHYDROGENASE INCREASED [None]
  - CONDITION AGGRAVATED [None]
  - DERMATITIS EXFOLIATIVE [None]
  - EOSINOPHILIA [None]
  - GAMMA-GLUTAMYLTRANSFERASE INCREASED [None]
  - LYMPHADENOPATHY [None]
  - NO THERAPEUTIC RESPONSE [None]
  - OEDEMA PERIPHERAL [None]
  - PSORIASIS [None]
